FAERS Safety Report 4915940-4 (Version None)
Quarter: 2006Q1

REPORT INFORMATION
  Report Type: 
  Country: None (occurrence: None)
  Receive Date: 20060214
  Receipt Date: 20060126
  Transmission Date: 20060701
  Serious: Yes (Hospitalization, Other)
  Sender: FDA-Public Use
  Company Number: US200601004852

PATIENT
  Sex: Female

DRUGS (3)
  1. FORTEO [Suspect]
     Dates: start: 20050401
  2. FORTEO PEN (FORTEO PEN) PEN, DISPOSABLE [Concomitant]
  3. MUSCLE RELAXANTS [Concomitant]

REACTIONS (4)
  - DIARRHOEA [None]
  - DRUG DISPENSING ERROR [None]
  - HYPERTENSION [None]
  - MALAISE [None]
